FAERS Safety Report 10163153 (Version 1)
Quarter: 2014Q2

REPORT INFORMATION
  Report Type: Spontaneous
  Country: CA (occurrence: CA)
  Receive Date: 20140509
  Receipt Date: 20140509
  Transmission Date: 20141212
  Serious: Yes (Other)
  Sender: FDA-Public Use
  Company Number: CA-GLAXOSMITHKLINE-A1072514A

PATIENT
  Sex: Female

DRUGS (2)
  1. HEPTOVIR [Suspect]
     Indication: PRODUCT USED FOR UNKNOWN INDICATION
     Route: 065
  2. RITUXAN [Suspect]
     Indication: PRODUCT USED FOR UNKNOWN INDICATION
     Route: 065

REACTIONS (6)
  - Decreased appetite [Unknown]
  - Glossitis [Unknown]
  - Hypoaesthesia oral [Unknown]
  - Lip dry [Unknown]
  - Oral pain [Unknown]
  - Tongue discolouration [Unknown]
